FAERS Safety Report 7568460-5 (Version None)
Quarter: 2011Q2

REPORT INFORMATION
  Report Type: 
  Country: None (occurrence: None)
  Receive Date: 20110623
  Receipt Date: 20110610
  Transmission Date: 20111010
  Serious: Yes (Other)
  Sender: FDA-Public Use
  Company Number: CA-ELI_LILLY_AND_COMPANY-CA201106003014

PATIENT
  Sex: Male
  Weight: 111.3 kg

DRUGS (12)
  1. DIAZEPAM [Concomitant]
  2. ZYPREXA [Suspect]
     Indication: BIPOLAR DISORDER
     Dosage: 5 MG, EACH EVENING
  3. ZYPREXA [Suspect]
     Dosage: 15 MG, EACH EVENING
  4. TEMAZEPAM [Concomitant]
  5. ZYPREXA [Suspect]
     Dosage: 10 MG, EACH EVENING
  6. ZYPREXA [Suspect]
     Dosage: 2.5 MG, EACH EVENING
  7. ZYPREXA [Suspect]
     Dosage: 2.5 MG, QOD
  8. ZYPREXA [Suspect]
     Dosage: 25 MG, EACH EVENING
  9. TOPAMAX [Concomitant]
  10. IMOVANE [Concomitant]
  11. LITHIUM [Concomitant]
  12. ZIPRASIDONE HYDROCHLORIDE [Concomitant]

REACTIONS (5)
  - PLANTAR FASCIITIS [None]
  - DIABETES MELLITUS [None]
  - OVERDOSE [None]
  - PARAESTHESIA [None]
  - WEIGHT INCREASED [None]
